FAERS Safety Report 7347488-4 (Version None)
Quarter: 2011Q1

REPORT INFORMATION
  Report Type: 
  Country: None (occurrence: None)
  Receive Date: 20110311
  Receipt Date: 20110225
  Transmission Date: 20110831
  Serious: Yes (Other)
  Sender: FDA-Public Use
  Company Number: US-BAYER-201037396NA

PATIENT
  Sex: Female

DRUGS (4)
  1. YASMIN [Suspect]
     Indication: PRODUCT USED FOR UNKNOWN INDICATION
     Route: 048
     Dates: start: 20010101
  2. YAZ [Suspect]
     Indication: PRODUCT USED FOR UNKNOWN INDICATION
     Route: 048
     Dates: start: 20010101
  3. LEVAQUIN [Concomitant]
  4. OCELLA [Suspect]
     Indication: PRODUCT USED FOR UNKNOWN INDICATION
     Route: 048
     Dates: start: 20010101

REACTIONS (5)
  - GALLBLADDER INJURY [None]
  - VOMITING [None]
  - GASTROENTERITIS [None]
  - DIARRHOEA [None]
  - NAUSEA [None]
